FAERS Safety Report 4660505-5 (Version None)
Quarter: 2005Q2

REPORT INFORMATION
  Report Type: 
  Country: None (occurrence: None)
  Receive Date: 20050511
  Receipt Date: 20050511
  Transmission Date: 20051028
  Serious: Yes (Life-Threatening, Hospitalization, Disabling)
  Sender: FDA-Public Use
  Company Number: None

PATIENT
  Sex: Female
  Weight: 54.4316 kg

DRUGS (2)
  1. LISINOPRIL AND HYDROCHLOROTHIAZIDE [Suspect]
  2. THYROID TAB [Suspect]

REACTIONS (12)
  - CERVICAL VERTEBRAL FRACTURE [None]
  - CONTUSION [None]
  - DRUG ADMINISTRATION ERROR [None]
  - DRUG DISPENSING ERROR [None]
  - FALL [None]
  - HYPERTHYROIDISM [None]
  - IMPAIRED DRIVING ABILITY [None]
  - IMPAIRED WORK ABILITY [None]
  - MEDICATION ERROR [None]
  - SKIN LACERATION [None]
  - SLEEP WALKING [None]
  - UPPER LIMB FRACTURE [None]
